FAERS Safety Report 16970700 (Version 10)
Quarter: 2020Q2

REPORT INFORMATION
  Report Type: Report from Study
  Country: US (occurrence: US)
  Receive Date: 20191029
  Receipt Date: 20200415
  Transmission Date: 20200713
  Serious: Yes (Other)
  Sender: FDA-Public Use
  Company Number: US-PFIZER INC-2019444586

PATIENT
  Age: 57 Year
  Sex: Female

DRUGS (3)
  1. LETROZOLE. [Concomitant]
     Active Substance: LETROZOLE
     Dosage: UNK UNK, DAILY
  2. IBRANCE [Suspect]
     Active Substance: PALBOCICLIB
     Dosage: 125 MG, CYCLIC (DAILY, FOR 9 DAYS, 7 DAYS OFF)
     Route: 048
     Dates: start: 20200331
  3. IBRANCE [Suspect]
     Active Substance: PALBOCICLIB
     Indication: BREAST CANCER FEMALE
     Dosage: 125 MG, CYCLIC (ONCE A DAY/EVERY DAY/21 DAYS ON, 7 DAYS OFF)
     Route: 048
     Dates: start: 20191002, end: 20200213

REACTIONS (21)
  - Fatigue [Not Recovered/Not Resolved]
  - Abdominal pain upper [Unknown]
  - Cough [Recovering/Resolving]
  - Asthenia [Recovering/Resolving]
  - Dyspepsia [Recovered/Resolved]
  - Myalgia [Recovered/Resolved]
  - Emphysema [Unknown]
  - Pain in extremity [Unknown]
  - Paraesthesia [Recovered/Resolved]
  - Ear infection [Recovered/Resolved]
  - White blood cell count decreased [Recovered/Resolved]
  - Oropharyngeal pain [Recovering/Resolving]
  - Dizziness [Recovering/Resolving]
  - Hypoaesthesia [Unknown]
  - Throat irritation [Unknown]
  - Red blood cell count decreased [Recovered/Resolved]
  - Productive cough [Recovering/Resolving]
  - Nephrolithiasis [Recovering/Resolving]
  - Product dose omission [Unknown]
  - Inappropriate schedule of product administration [Unknown]
  - Headache [Recovering/Resolving]

NARRATIVE: CASE EVENT DATE: 201910
